FAERS Safety Report 6573355-X (Version None)
Quarter: 2010Q1

REPORT INFORMATION
  Report Type: 
  Country: None (occurrence: None)
  Receive Date: 20100204
  Receipt Date: 20100204
  Transmission Date: 20100710
  Serious: Yes (Death, Life-Threatening, Hospitalization)
  Sender: FDA-Public Use
  Company Number: None

PATIENT
  Age: 68 Year
  Sex: Male
  Weight: 95 kg

DRUGS (9)
  1. DECITABINE 50 MG VIALS/PHARMACHEMIE B.V. FOR EISAI, INC. [Suspect]
     Indication: ACUTE MYELOID LEUKAEMIA
     Dosage: 46 MG IV FOR 5 DAYS
     Route: 042
     Dates: start: 20091217, end: 20091221
  2. RAPAMYCIN 2 MG TABS/WYETH [Suspect]
     Indication: ACUTE MYELOID LEUKAEMIA
     Dosage: 2 MG PO FOR 7 DAYS
     Route: 048
     Dates: start: 20091222, end: 20091228
  3. INSULIN [Concomitant]
  4. AMBIEN [Concomitant]
  5. ATIVAN [Concomitant]
  6. PROTONIX [Concomitant]
  7. SENNA [Concomitant]
  8. DOCUSATE [Concomitant]
  9. GLIMEPIRIDE [Concomitant]

REACTIONS (6)
  - ATRIAL FIBRILLATION [None]
  - BACTERIAL TEST POSITIVE [None]
  - DISEASE COMPLICATION [None]
  - PULMONARY OEDEMA [None]
  - RESPIRATORY DISORDER [None]
  - STREPTOCOCCAL INFECTION [None]
